FAERS Safety Report 11839004 (Version 1)
Quarter: 2015Q4

REPORT INFORMATION
  Report Type: Spontaneous
  Country: US (occurrence: US)
  Receive Date: 20151216
  Receipt Date: 20151216
  Transmission Date: 20160305
  Serious: Yes (Disabling, Other)
  Sender: FDA-Public Use
  Company Number: US-ROCHE-1677113

PATIENT
  Age: 57 Year
  Sex: Female

DRUGS (1)
  1. PULMOZYME [Suspect]
     Active Substance: DORNASE ALFA
     Indication: RESPIRATORY DYSKINESIA
     Route: 065

REACTIONS (3)
  - Cachexia [Unknown]
  - Disability [Unknown]
  - Oxygen saturation decreased [Unknown]
